FAERS Safety Report 11236783 (Version 1)
Quarter: 2015Q3

REPORT INFORMATION
  Report Type: Spontaneous
  Country: US (occurrence: US)
  Receive Date: 20150703
  Receipt Date: 20150703
  Transmission Date: 20151125
  Serious: No
  Sender: FDA-Public Use
  Company Number: US-TAKEDA-2015TUS006124

PATIENT
  Age: 27 Year
  Sex: Female
  Weight: 79.37 kg

DRUGS (3)
  1. CONTRAVE [Suspect]
     Active Substance: BUPROPION HYDROCHLORIDE\NALTREXONE HYDROCHLORIDE
     Indication: WEIGHT CONTROL
     Dosage: ONE TABLET DAILY
     Route: 048
     Dates: start: 20150415, end: 20150421
  2. CONTRAVE [Suspect]
     Active Substance: BUPROPION HYDROCHLORIDE\NALTREXONE HYDROCHLORIDE
     Dosage: 1 TABLET, BID
     Route: 048
     Dates: start: 20150422, end: 20150428
  3. CONTRAVE [Suspect]
     Active Substance: BUPROPION HYDROCHLORIDE\NALTREXONE HYDROCHLORIDE
     Dosage: TWO TABLETS Q AM, ONE TABLET Q PM
     Route: 048
     Dates: start: 20150429, end: 20150502

REACTIONS (7)
  - Vomiting [Recovering/Resolving]
  - Blepharospasm [Recovered/Resolved]
  - Nausea [Recovering/Resolving]
  - Feeling abnormal [Recovering/Resolving]
  - Dizziness [Recovering/Resolving]
  - Tremor [Recovering/Resolving]
  - Headache [Recovering/Resolving]
